FAERS Safety Report 13517048 (Version 1)
Quarter: 2017Q2

REPORT INFORMATION
  Report Type: Spontaneous
  Country: US (occurrence: US)
  Receive Date: 20170505
  Receipt Date: 20170505
  Transmission Date: 20170830
  Serious: Yes (Hospitalization, Other)
  Sender: FDA-Public Use
  Company Number: US-ZYDUS-014932

PATIENT
  Age: 42 Year
  Sex: Female

DRUGS (1)
  1. WARFARIN [Suspect]
     Active Substance: WARFARIN
     Indication: PULMONARY EMBOLISM
     Route: 065

REACTIONS (19)
  - Postrenal failure [Recovered/Resolved]
  - Pyrexia [Recovered/Resolved]
  - Haemoglobin decreased [Recovered/Resolved]
  - Hypovolaemia [Recovered/Resolved]
  - Urine output decreased [Recovered/Resolved]
  - Abdominal wall haematoma [Recovered/Resolved]
  - Obstructive uropathy [Recovered/Resolved]
  - Abdominal pain [Recovered/Resolved]
  - Anuria [Recovered/Resolved]
  - Abdominal tenderness [Recovered/Resolved]
  - Suprapubic pain [Recovered/Resolved]
  - Diarrhoea [Recovered/Resolved]
  - Blood creatinine increased [Recovered/Resolved]
  - Pelvic haematoma [Recovered/Resolved]
  - Condition aggravated [Recovered/Resolved]
  - Dyspnoea [Recovered/Resolved]
  - Hypotension [Recovered/Resolved]
  - Tachycardia [Recovered/Resolved]
  - Hydronephrosis [Recovered/Resolved]
